FAERS Safety Report 9339191 (Version 2)
Quarter: 2013Q4

REPORT INFORMATION
  Report Type: Spontaneous
  Country: US (occurrence: US)
  Receive Date: 20130610
  Receipt Date: 20131209
  Transmission Date: 20140711
  Serious: Yes (Other)
  Sender: FDA-Public Use
  Company Number: US-ROCHE-1229523

PATIENT
  Sex: Female

DRUGS (5)
  1. XELODA [Suspect]
     Indication: BREAST CANCER
     Route: 048
  2. XELODA [Suspect]
     Indication: COLON CANCER
     Route: 048
  3. XELODA [Suspect]
     Dosage: 500 MG TABLETS - 2 TABS IN THE AM AND 2 TABS AT NIGHT.
     Route: 048
  4. XELODA [Suspect]
     Dosage: 3/3 12 HOURS 2 WEEKS ON 1 WEEK OFF,  2 IN AM 2 IN PM ON 2 WEEKS OFF 2 WEEKS
     Route: 048
  5. OMEPRAZOLE [Concomitant]
     Indication: DYSPEPSIA

REACTIONS (29)
  - Back disorder [Unknown]
  - Bladder disorder [Not Recovered/Not Resolved]
  - Mass [Unknown]
  - Metastases to central nervous system [Unknown]
  - Cardiac disorder [Unknown]
  - Diarrhoea [Recovering/Resolving]
  - Constipation [Recovering/Resolving]
  - Palmar-plantar erythrodysaesthesia syndrome [Not Recovered/Not Resolved]
  - Musculoskeletal stiffness [Not Recovered/Not Resolved]
  - Onychoclasis [Not Recovered/Not Resolved]
  - Fatigue [Not Recovered/Not Resolved]
  - Asthenia [Not Recovered/Not Resolved]
  - Nausea [Recovering/Resolving]
  - Vomiting [Recovering/Resolving]
  - Musculoskeletal stiffness [Not Recovered/Not Resolved]
  - Urinary incontinence [Unknown]
  - Blood count abnormal [Unknown]
  - Decreased appetite [Unknown]
  - Skin discolouration [Unknown]
  - Weight decreased [Unknown]
  - Skin exfoliation [Unknown]
  - Gastric ulcer [Unknown]
  - Gastrointestinal tract irritation [Unknown]
  - Alopecia [Unknown]
  - Alopecia [Unknown]
  - Back pain [Recovering/Resolving]
  - Arthritis [Unknown]
  - Tendon injury [Recovered/Resolved]
  - Nail disorder [Unknown]
